FAERS Safety Report 8182721 (Version 6)
Quarter: 2013Q3

REPORT INFORMATION
  Report Type: Spontaneous
  Country: US (occurrence: None)
  Receive Date: 20111005
  Receipt Date: 20130702
  Transmission Date: 20140515
  Serious: Yes (Hospitalization, Other)
  Sender: FDA-Public Use
  Company Number: JPI-P-005521

PATIENT
  Age: 76 Year
  Sex: Male
  Weight: 80.74 kg

DRUGS (19)
  1. XYREM [Suspect]
     Indication: CATAPLEXY
     Dosage: 5 GM (2.5 GN, 2  IN 1 D), ORAL
     Route: 048
     Dates: start: 20070321
  2. MODAFINIL [Concomitant]
  3. METOPROLOL [Concomitant]
  4. SIMVASTATIN [Concomitant]
  5. ALLOPURINOL [Concomitant]
  6. LISINOPRIL [Concomitant]
  7. OMEGA 3 FISH OIL [Concomitant]
  8. AMIODARONE [Concomitant]
  9. PANTOPRAZOLE [Concomitant]
  10. COLCHICINE [Concomitant]
  11. DESONIDE [Concomitant]
  12. KETOCONAZOLE [Concomitant]
  13. AMOXICILLIN [Concomitant]
  14. OTC ALLERGY [Concomitant]
  15. CALCIUM [Concomitant]
  16. MULTIVITAMINS [Concomitant]
  17. MAGNESIUM [Concomitant]
  18. BISULFATE [Concomitant]
  19. VENLAFAXINE [Concomitant]

REACTIONS (7)
  - Atrial fibrillation [None]
  - Coronary artery occlusion [None]
  - Ejection fraction decreased [None]
  - Pyrexia [None]
  - Haemorrhoids [None]
  - Post procedural complication [None]
  - Fluid retention [None]
